FAERS Safety Report 12276510 (Version 1)
Quarter: 2016Q2

REPORT INFORMATION
  Report Type: Spontaneous
  Country: US (occurrence: None)
  Receive Date: 20160415
  Receipt Date: 20160415
  Transmission Date: 20160815
  Serious: Yes (Hospitalization)
  Sender: FDA-Public Use
  Company Number: None

PATIENT
  Age: 64 Year
  Sex: Female
  Weight: 128.5 kg

DRUGS (1)
  1. METFORMIN HYDROCHLORIDE. [Suspect]
     Active Substance: METFORMIN HYDROCHLORIDE
     Dates: end: 20160314

REACTIONS (9)
  - Uterine cancer [None]
  - Hypertension [None]
  - Neuralgia [None]
  - Flushing [None]
  - Toxicity to various agents [None]
  - Dyspnoea [None]
  - Endometrial adenocarcinoma [None]
  - Abdominal mass [None]
  - Mass [None]

NARRATIVE: CASE EVENT DATE: 20160315
